FAERS Safety Report 15329520 (Version 5)
Quarter: 2018Q4

REPORT INFORMATION
  Report Type: Other
  Country: CA (occurrence: CA)
  Receive Date: 20180829
  Receipt Date: 20181210
  Transmission Date: 20190204
  Serious: Yes (Other)
  Sender: FDA-Public Use
  Company Number: CA-HLSUS-2018-CA-001285

PATIENT
  Age: 55 Year
  Sex: Male

DRUGS (15)
  1. EPIVAL [Concomitant]
     Active Substance: DIVALPROEX SODIUM
  2. SEROQUEL [Concomitant]
     Active Substance: QUETIAPINE FUMARATE
  3. BRICANYL [Concomitant]
     Active Substance: TERBUTALINE SULFATE
     Dosage: ONE PUFF QID
  4. CELEBREX [Concomitant]
     Active Substance: CELECOXIB
     Dosage: 100 MG BID PRN
     Route: 048
  5. CLAVULIN [Concomitant]
     Active Substance: AMOXICILLIN\CLAVULANIC ACID
     Dosage: 875+125 MG 1 PILL
  6. CLOZARIL [Suspect]
     Active Substance: CLOZAPINE
     Indication: BIPOLAR DISORDER
     Route: 048
     Dates: start: 20051205
  7. ZYPREXA [Concomitant]
     Active Substance: OLANZAPINE
  8. DIAMICRON [Concomitant]
     Active Substance: GLICLAZIDE
     Dosage: 120 MG IN THE MORNING
  9. LAMICTAL [Concomitant]
     Active Substance: LAMOTRIGINE
  10. JANUVIA [Concomitant]
     Active Substance: SITAGLIPTIN PHOSPHATE
     Dosage: 100 MG DAILY
  11. DIOVAN [Concomitant]
     Active Substance: VALSARTAN
     Dosage: 40 MG DAILY
  12. ADVAIR DISKUS [Concomitant]
     Active Substance: FLUTICASONE PROPIONATE\SALMETEROL XINAFOATE
     Dosage: ONE INHALATION BID
  13. TOPAMAX [Concomitant]
     Active Substance: TOPIRAMATE
  14. TEGRETOL [Concomitant]
     Active Substance: CARBAMAZEPINE
  15. RISPERDAL [Concomitant]
     Active Substance: RISPERIDONE

REACTIONS (17)
  - Cognitive disorder [None]
  - Infection [None]
  - Essential tremor [None]
  - Polymyalgia rheumatica [Unknown]
  - Bone pain [None]
  - B-cell lymphoma [Unknown]
  - Hypertension [None]
  - Asthma [None]
  - Normochromic anaemia [None]
  - Gastrooesophageal reflux disease [None]
  - Epilepsy [Unknown]
  - Nephropathy [None]
  - Leukocytosis [Unknown]
  - Neutropenia [None]
  - Neutrophilia [Unknown]
  - Type 2 diabetes mellitus [Unknown]
  - Gastritis [None]

NARRATIVE: CASE EVENT DATE: 20080219
